FAERS Safety Report 4643593-1 (Version None)
Quarter: 2005Q2

REPORT INFORMATION
  Report Type: 
  Country: None (occurrence: None)
  Receive Date: 20050425
  Receipt Date: 20050330
  Transmission Date: 20051028
  Serious: No
  Sender: FDA-Public Use
  Company Number: FR-BRISTOL-MYERS SQUIBB COMPANY-12921003

PATIENT
  Age: 36 Year
  Sex: Male

DRUGS (3)
  1. VIDEX [Suspect]
     Indication: HIV INFECTION
     Dates: start: 19991201, end: 20010101
  2. SUSTIVA [Suspect]
     Indication: HIV INFECTION
     Dates: start: 19991201
  3. RETROVIR [Suspect]
     Indication: HIV INFECTION
     Dates: start: 19991201

REACTIONS (1)
  - PANCREATITIS ACUTE [None]
